FAERS Safety Report 25370147 (Version 1)
Quarter: 2025Q2

REPORT INFORMATION
  Report Type: Spontaneous
  Country: US (occurrence: US)
  Receive Date: 20250528
  Receipt Date: 20250528
  Transmission Date: 20250717
  Serious: No
  Sender: PFIZER
  Company Number: US-PFIZER INC-202500109614

PATIENT
  Age: 67 Year
  Sex: Female

DRUGS (2)
  1. BRAFTOVI [Suspect]
     Active Substance: ENCORAFENIB
     Dosage: 75MG 3 CAPSULES DAILY
  2. MEKTOVI [Suspect]
     Active Substance: BINIMETINIB
     Dosage: 15MG 3 TABLETS EVERY 12 HOURS

REACTIONS (2)
  - Illness [Unknown]
  - Cerebral disorder [Unknown]
